FAERS Safety Report 25519110 (Version 1)
Quarter: 2025Q3

REPORT INFORMATION
  Report Type: Spontaneous
  Country: JP (occurrence: JP)
  Receive Date: 20250704
  Receipt Date: 20250704
  Transmission Date: 20251021
  Serious: Yes (Death, Other)
  Sender: JAZZ
  Company Number: JP-JAZZ PHARMACEUTICALS-2025-JP-001339

PATIENT
  Age: 72 Year
  Sex: Male

DRUGS (1)
  1. VYXEOS [Suspect]
     Active Substance: CYTARABINE\DAUNORUBICIN
     Indication: Acute myeloid leukaemia recurrent
     Route: 042
     Dates: start: 20241213, end: 20241217

REACTIONS (2)
  - Cardiac arrest [Fatal]
  - Mucosal disorder [Recovered/Resolved]
